FAERS Safety Report 5071308-4 (Version None)
Quarter: 2006Q3

REPORT INFORMATION
  Report Type: 
  Country: None (occurrence: None)
  Receive Date: 20060804
  Receipt Date: 20060103
  Transmission Date: 20061208
  Serious: No
  Sender: FDA-Public Use
  Company Number: US-AMGEN-US163486

PATIENT
  Sex: Female

DRUGS (6)
  1. ARANESP [Suspect]
     Indication: RENAL FAILURE CHRONIC
     Route: 058
     Dates: start: 20050401
  2. DIOVAN [Concomitant]
  3. TOPROL-XL [Concomitant]
  4. KEFLEX [Concomitant]
     Dates: start: 20051228, end: 20060101
  5. CARTIA XT [Concomitant]
  6. ZEMPLAR [Concomitant]
     Dates: start: 20051228

REACTIONS (2)
  - FATIGUE [None]
  - HAEMOGLOBIN DECREASED [None]
